FAERS Safety Report 7700858-4 (Version None)
Quarter: 2011Q3

REPORT INFORMATION
  Report Type: 
  Country: None (occurrence: None)
  Receive Date: 20110822
  Receipt Date: 20110808
  Transmission Date: 20111222
  Serious: Yes (Other)
  Sender: FDA-Public Use
  Company Number: PHFR2011GB04390

PATIENT
  Sex: Male
  Weight: 86 kg

DRUGS (5)
  1. ARIPIPRAZOLE [Concomitant]
     Indication: PSYCHOTIC DISORDER
     Dosage: 15 MG, UNK
     Route: 048
  2. HYOSCINE [Concomitant]
     Indication: SALIVARY HYPERSECRETION
     Dosage: 600 UG, UNK
     Route: 048
  3. ZUCLOPENTHIXOL DECANOATE [Concomitant]
     Indication: PSYCHOTIC DISORDER
     Dosage: 600 MG, UNK
     Route: 030
     Dates: end: 20110719
  4. CLOZAPINE [Suspect]
     Indication: SCHIZOPHRENIA
     Dosage: 200 MG, UNK
     Route: 048
     Dates: start: 20110715
  5. VALPROATE SODIUM [Concomitant]
     Indication: AFFECTIVE DISORDER
     Dosage: 2 G, UNK
     Route: 048

REACTIONS (2)
  - SUBMAXILLARY GLAND ENLARGEMENT [None]
  - SALIVARY HYPERSECRETION [None]
